FAERS Safety Report 7643981-5 (Version None)
Quarter: 2011Q3

REPORT INFORMATION
  Report Type: 
  Country: None (occurrence: None)
  Receive Date: 20110729
  Receipt Date: 20101215
  Transmission Date: 20111222
  Serious: No
  Sender: FDA-Public Use
  Company Number: US-GLAXOSMITHKLINE-A0899930A

PATIENT
  Age: 49 Year
  Sex: Female

DRUGS (3)
  1. SYNTHROID [Concomitant]
  2. RANITIDINE [Suspect]
     Indication: GASTROOESOPHAGEAL REFLUX DISEASE
     Dosage: 150MG THREE TIMES PER DAY
     Route: 048
     Dates: start: 20080101, end: 20080101
  3. HORMONE REPLACEMENT [Concomitant]

REACTIONS (2)
  - DYSPEPSIA [None]
  - DRUG INEFFECTIVE [None]
